FAERS Safety Report 20842915 (Version 1)
Quarter: 2022Q2

REPORT INFORMATION
  Report Type: Spontaneous
  Country: US (occurrence: None)
  Receive Date: 20220517
  Receipt Date: 20220517
  Transmission Date: 20220721
  Serious: Yes (Death, Hospitalization)
  Sender: FDA-Public Use
  Company Number: None

PATIENT
  Age: 77 Year
  Sex: Female
  Weight: 67.6 kg

DRUGS (2)
  1. PACLITAXEL PROTEIN-BOUND PARTICLES FOR INJECTABLE SUSPENSION (ALBUMIN- [Suspect]
     Active Substance: PACLITAXEL
     Dates: end: 20220419
  2. GEMCITABINE HYDROCHLORIDE [Suspect]
     Active Substance: GEMCITABINE HYDROCHLORIDE
     Dates: end: 20220419

REACTIONS (8)
  - Diarrhoea [None]
  - Asthenia [None]
  - Constipation [None]
  - Abdominal pain [None]
  - Cellulitis [None]
  - Septic shock [None]
  - Pneumonia [None]
  - Infection [None]

NARRATIVE: CASE EVENT DATE: 20220424
